FAERS Safety Report 14848904 (Version 1)
Quarter: 2018Q2

REPORT INFORMATION
  Report Type: Spontaneous
  Country: TR (occurrence: TR)
  Receive Date: 20180504
  Receipt Date: 20180504
  Transmission Date: 20180711
  Serious: Yes (Hospitalization)
  Sender: FDA-Public Use
  Company Number: TR-SA-2018SA116263

PATIENT
  Age: 31 Year
  Sex: Male
  Weight: 70 kg

DRUGS (1)
  1. FABRAZYME [Suspect]
     Active Substance: AGALSIDASE BETA
     Route: 041
     Dates: start: 20180414, end: 20180414

REACTIONS (9)
  - Tachycardia [Recovered/Resolved]
  - Tremor [Recovered/Resolved]
  - Anxiety [Recovered/Resolved]
  - Pyrexia [Recovered/Resolved]
  - Feeling cold [Recovered/Resolved]
  - Skin discolouration [Recovered/Resolved]
  - Hypertension [Recovered/Resolved]
  - Musculoskeletal pain [Recovered/Resolved]
  - Eye allergy [Recovered/Resolved]

NARRATIVE: CASE EVENT DATE: 20180414
